FAERS Safety Report 4870792-6 (Version None)
Quarter: 2006Q1

REPORT INFORMATION
  Report Type: 
  Country: None (occurrence: None)
  Receive Date: 20060103
  Receipt Date: 20050401
  Transmission Date: 20060701
  Serious: Yes (Other)
  Sender: FDA-Public Use
  Company Number: US-MERCK-0504USA00816

PATIENT
  Age: 46 Year
  Sex: Male
  Weight: 89 kg

DRUGS (4)
  1. VIOXX [Suspect]
     Indication: NEURALGIA
     Route: 048
     Dates: start: 19990501, end: 20020101
  2. VIOXX [Suspect]
     Route: 048
     Dates: start: 19990501, end: 20020101
  3. VIOXX [Suspect]
     Indication: PAIN
     Route: 048
     Dates: start: 19990501, end: 20020101
  4. VIOXX [Suspect]
     Route: 048
     Dates: start: 19990501, end: 20020101

REACTIONS (7)
  - BACK PAIN [None]
  - BRONCHITIS [None]
  - CHEST PAIN [None]
  - DEPRESSION [None]
  - DYSPNOEA [None]
  - INJURY [None]
  - MYOCARDIAL INFARCTION [None]
